FAERS Safety Report 11915106 (Version 1)
Quarter: 2016Q1

REPORT INFORMATION
  Report Type: Spontaneous
  Country: US (occurrence: US)
  Receive Date: 20160114
  Receipt Date: 20160114
  Transmission Date: 20160526
  Serious: No
  Sender: FDA-Public Use
  Company Number: US-ASTRAZENECA-2016SE01407

PATIENT
  Age: 90 Year
  Sex: Male

DRUGS (1)
  1. SYMBICORT [Suspect]
     Active Substance: BUDESONIDE\FORMOTEROL FUMARATE DIHYDRATE
     Dosage: 80/4.5 MCG, UNKNOWN
     Route: 055
     Dates: start: 2013

REACTIONS (3)
  - Circumstance or information capable of leading to medication error [Unknown]
  - Intentional product misuse [Unknown]
  - Memory impairment [Unknown]
